FAERS Safety Report 20638235 (Version 1)
Quarter: 2022Q1

REPORT INFORMATION
  Report Type: Spontaneous
  Country: US (occurrence: US)
  Receive Date: 20220325
  Receipt Date: 20220325
  Transmission Date: 20220423
  Serious: Yes (Other)
  Sender: FDA-Public Use
  Company Number: US-PFIZER INC-202200426589

PATIENT
  Age: 67 Year
  Sex: Male

DRUGS (3)
  1. XELJANZ XR [Suspect]
     Active Substance: TOFACITINIB CITRATE
     Dosage: 11 MG, DAILY
     Route: 048
  2. METHOTREXATE [Concomitant]
     Active Substance: METHOTREXATE
     Dosage: UNK
  3. COVID-19 VACCINE [Concomitant]
     Dosage: DOSE NUMBER UNKNOWN, SINGLE
     Dates: start: 20210108, end: 20210108

REACTIONS (3)
  - Deafness [Not Recovered/Not Resolved]
  - Cardiac disorder [Unknown]
  - Blood pressure abnormal [Unknown]
